FAERS Safety Report 16918129 (Version 2)
Quarter: 2019Q4

REPORT INFORMATION
  Report Type: Spontaneous
  Country: FR (occurrence: FR)
  Receive Date: 20191015
  Receipt Date: 20191225
  Transmission Date: 20200122
  Serious: Yes (Other)
  Sender: FDA-Public Use
  Company Number: FR-TEVA-2019-FR-1121260

PATIENT
  Age: 57 Year
  Sex: Female
  Weight: 87 kg

DRUGS (15)
  1. KETAMINE [Suspect]
     Active Substance: KETAMINE
     Indication: NEURALGIA
     Route: 042
     Dates: start: 201410, end: 201708
  2. BROMAZEPAM [Suspect]
     Active Substance: BROMAZEPAM
     Indication: PANIC ATTACK
     Dosage: 1/4 - 1/4 - 1/4 - 1/2
     Route: 048
  3. ACUPAN [Suspect]
     Active Substance: NEFOPAM HYDROCHLORIDE
     Indication: NEURALGIA
     Dosage: IF NEED BE
     Route: 042
  4. LOXAPAC [Suspect]
     Active Substance: LOXAPINE
     Indication: PANIC ATTACK
     Dosage: 5 - 7 DROPS AT BEDTIME
     Route: 048
  5. OMEPRAZOLE. [Suspect]
     Active Substance: OMEPRAZOLE
     Indication: PRODUCT USED FOR UNKNOWN INDICATION
     Dosage: 20 MG PER DAY
     Route: 048
  6. LEVOTHYROX [Suspect]
     Active Substance: LEVOTHYROXINE
     Indication: HYPOTHYROIDISM
     Dosage: 75 MG PER DAY
     Route: 048
  7. NARAMIG [Suspect]
     Active Substance: NARATRIPTAN HYDROCHLORIDE
     Indication: MIGRAINE
     Dosage: IF NEED BE
     Route: 048
  8. INNOVAIR [Suspect]
     Active Substance: BECLOMETHASONE DIPROPIONATE\FORMOTEROL
     Indication: CHRONIC OBSTRUCTIVE PULMONARY DISEASE
     Dosage: 4 DOSAGE FORMS
     Route: 055
  9. KETAMINE RENAUDIN [Suspect]
     Active Substance: KETAMINE
     Indication: NEURALGIA
     Dosage: 20 MG PER DAY
     Route: 042
     Dates: start: 201708
  10. FLUOXETINE (CHLORHYDRATE DE) [Suspect]
     Active Substance: FLUOXETINE HYDROCHLORIDE
     Indication: DEPRESSION
     Dosage: 40 MG PER DAY
     Route: 048
  11. IMODIUM [Suspect]
     Active Substance: LOPERAMIDE HYDROCHLORIDE
     Indication: DIARRHOEA
     Dosage: 6 MG PER DAY
     Route: 048
  12. LOXEN (NICARDIPINE HYDROCHLORIDE) [Suspect]
     Active Substance: NICARDIPINE HYDROCHLORIDE
     Indication: PRODUCT USED FOR UNKNOWN INDICATION
     Dosage: 2 DOSAGE FORMS
     Route: 048
  13. DOLIPRANE [Suspect]
     Active Substance: ACETAMINOPHEN
     Indication: NEURALGIA
     Dosage: IF NEED BE
     Route: 048
  14. PROPRANOLOL [Suspect]
     Active Substance: PROPRANOLOL HYDROCHLORIDE
     Indication: PRODUCT USED FOR UNKNOWN INDICATION
     Dosage: 40 MG PER DAY
     Route: 048
  15. ZOLPIDEM [Suspect]
     Active Substance: ZOLPIDEM TARTRATE
     Indication: PRODUCT USED FOR UNKNOWN INDICATION
     Dosage: 10 MG PER DAY
     Route: 048

REACTIONS (2)
  - Liver function test abnormal [Recovering/Resolving]
  - Cholestasis [Recovering/Resolving]

NARRATIVE: CASE EVENT DATE: 201708
